FAERS Safety Report 9227327 (Version 1)
Quarter: 2013Q2

REPORT INFORMATION
  Report Type: Spontaneous
  Country: CA (occurrence: CA)
  Receive Date: 20130412
  Receipt Date: 20130412
  Transmission Date: 20140414
  Serious: Yes (Death)
  Sender: FDA-Public Use
  Company Number: PHHY2013CA026417

PATIENT
  Age: 70 Year
  Sex: Male

DRUGS (3)
  1. SANDOSTATIN LAR [Suspect]
     Indication: NEUROENDOCRINE CARCINOMA
     Dosage: 30MG, EVERY 2 WEEKS (PREVIOUSLY 40 MG, QMO)
     Route: 030
     Dates: start: 20070822
  2. SANDOSTATIN LAR [Suspect]
     Dosage: 60MG, EVERY 2 WEEKS (PREVIOUSLY 40 MG, QMO)
     Route: 030
     Dates: end: 20130401
  3. AFINITOR [Suspect]
     Indication: NEUROENDOCRINE CARCINOMA
     Dosage: 10 MG, QD
     Dates: start: 20110114, end: 20121019

REACTIONS (5)
  - Death [Fatal]
  - Abdominal mass [Unknown]
  - Back pain [Unknown]
  - Abdominal distension [Unknown]
  - Nausea [Unknown]
